FAERS Safety Report 24675663 (Version 1)
Quarter: 2024Q4

REPORT INFORMATION
  Report Type: Spontaneous
  Country: FR (occurrence: FR)
  Receive Date: 20241128
  Receipt Date: 20241128
  Transmission Date: 20250115
  Serious: Yes (Death)
  Sender: PFIZER
  Company Number: None

PATIENT
  Age: 83 Year
  Sex: Male
  Weight: 83.5 kg

DRUGS (2)
  1. ATRACURIUM BESYLATE [Suspect]
     Active Substance: ATRACURIUM BESYLATE
     Indication: Resuscitation
     Dosage: 1 DF
     Route: 042
     Dates: start: 20241006, end: 20241006
  2. AMIODARONE [Suspect]
     Active Substance: AMIODARONE
     Indication: Resuscitation
     Dosage: 1 DF
     Route: 042
     Dates: start: 20241006, end: 20241006

REACTIONS (2)
  - Cardiogenic shock [Fatal]
  - Off label use [Unknown]

NARRATIVE: CASE EVENT DATE: 20241006
